FAERS Safety Report 24769918 (Version 1)
Quarter: 2024Q4

REPORT INFORMATION
  Report Type: Spontaneous
  Country: US (occurrence: US)
  Receive Date: 20241224
  Receipt Date: 20241224
  Transmission Date: 20250114
  Serious: No
  Sender: TORRENT PHARMA INC.
  Company Number: US-TORRENT-00013912

PATIENT
  Sex: Male

DRUGS (1)
  1. DICHLORPHENAMIDE [Suspect]
     Active Substance: DICHLORPHENAMIDE
     Indication: Paralysis
     Dosage: HALF OF DOSE
     Route: 065

REACTIONS (4)
  - Fatigue [Unknown]
  - Product substitution issue [Unknown]
  - Migraine [Unknown]
  - Drug ineffective [Unknown]
